FAERS Safety Report 14344975 (Version 1)
Quarter: 2018Q1

REPORT INFORMATION
  Report Type: Report from Study
  Country: None (occurrence: US)
  Receive Date: 20180103
  Receipt Date: 20180103
  Transmission Date: 20180509
  Serious: Yes (Hospitalization, Other)
  Sender: FDA-Public Use
  Company Number: US-ABBVIE-17K-163-2206088-00

PATIENT
  Sex: Male

DRUGS (1)
  1. HUMIRA [Suspect]
     Active Substance: ADALIMUMAB
     Indication: COLITIS ULCERATIVE
     Route: 058

REACTIONS (10)
  - Procedural complication [Unknown]
  - Perirectal abscess [Unknown]
  - Pain [Recovering/Resolving]
  - Haemorrhoids [Unknown]
  - Salmonellosis [Unknown]
  - Hypoaesthesia [Unknown]
  - Perineal cyst [Unknown]
  - Secretion discharge [Unknown]
  - Escherichia infection [Unknown]
  - Cyst rupture [Unknown]
